FAERS Safety Report 8107005-8 (Version None)
Quarter: 2012Q1

REPORT INFORMATION
  Report Type: 
  Country: None (occurrence: None)
  Receive Date: 20120202
  Receipt Date: 20120202
  Transmission Date: 20120608
  Serious: Yes (Other)
  Sender: FDA-Public Use
  Company Number: None

PATIENT
  Age: 46 Year
  Sex: Female
  Weight: 56.699 kg

DRUGS (2)
  1. PAXIL [Suspect]
     Indication: ANXIETY
     Dosage: 20.0 MG
     Route: 048
     Dates: start: 20090816, end: 20120103
  2. PAXIL [Suspect]
     Indication: DEPRESSION
     Dosage: 20.0 MG
     Route: 048
     Dates: start: 20090816, end: 20120103

REACTIONS (12)
  - AGITATION [None]
  - ECONOMIC PROBLEM [None]
  - VISION BLURRED [None]
  - PANIC ATTACK [None]
  - FATIGUE [None]
  - CHEST PAIN [None]
  - DIARRHOEA [None]
  - VOMITING [None]
  - SUICIDE ATTEMPT [None]
  - EUPHORIC MOOD [None]
  - DRUG WITHDRAWAL SYNDROME [None]
  - INSOMNIA [None]
